FAERS Safety Report 8953783 (Version 2)
Quarter: 2012Q4

REPORT INFORMATION
  Report Type: 
  Country: NL (occurrence: NL)
  Receive Date: 20121206
  Receipt Date: 20121218
  Transmission Date: 20130627
  Serious: Yes (Death, Other)
  Sender: FDA-Public Use
  Company Number: NL-TEVA-373321ISR

PATIENT
  Age: 52 Year
  Sex: Male

DRUGS (6)
  1. IBUPROFEN [Suspect]
     Dosage: onbekend, eerste maal
     Route: 048
     Dates: start: 20121122
  2. HYDROCHLOORTHIAZIDE TABLET 12,5MG [Concomitant]
     Dosage: 1 keer per dag 1 stuk(s)
     Route: 048
     Dates: start: 20121115
  3. FLIXOTIDE AER CFKVR 250MCG/DO SPBS  60 DO + INHAL [Concomitant]
     Dosage: 2 keer per dag 1 stuk(s)
     Route: 055
  4. SERETIDE DISKUS INHPDR 50/250MCG 60DO [Concomitant]
     Dosage: 2 keer per dag 1 stuk(s)
     Route: 055
  5. VENTOLIN DISKUS INHPDR 200MCG 60DO [Concomitant]
     Dosage: 4 keer per dag 1 stuk(s)
     Route: 055
     Dates: end: 201211
  6. DOXYCYCLINE DISPERTABLET 100MG [Concomitant]
     Dosage: 2 Dosage forms Daily; 1 keer per dag 2 stuk(s)
     Route: 048

REACTIONS (4)
  - Angioedema [Fatal]
  - Respiratory arrest [Fatal]
  - Cardiac arrest [Fatal]
  - Obstructive airways disorder [Fatal]
